FAERS Safety Report 9928669 (Version 2)
Quarter: 2014Q1

REPORT INFORMATION
  Report Type: Report from Study
  Country: BR (occurrence: BR)
  Receive Date: 20140227
  Receipt Date: 20140327
  Transmission Date: 20141002
  Serious: No
  Sender: FDA-Public Use
  Company Number: PHHY2014BR020195

PATIENT
  Sex: Female
  Weight: 80 kg

DRUGS (7)
  1. GALVUS MET [Suspect]
     Indication: DIABETES MELLITUS
     Dosage: 1 DF, (1000 MG METF/50 MG VILDA) QD AT BREAK FAST TIME
     Route: 048
     Dates: end: 20140215
  2. METFORMIN [Suspect]
     Indication: DIABETES MELLITUS
     Dosage: UNK UKN, UNK
     Dates: end: 20140215
  3. DIAMICRON [Concomitant]
     Indication: DIABETES MELLITUS
     Dosage: UNK UKN, UNK
  4. PURAN T4 [Concomitant]
     Indication: THYROID DISORDER
     Dosage: UNK UKN, UNK
  5. OMEPRAZOLE [Concomitant]
     Indication: ABDOMINAL DISCOMFORT
     Dosage: UNK UKN, UNK
  6. ARADOIS [Concomitant]
     Indication: BLOOD PRESSURE ABNORMAL
     Dosage: UNK UKN, UNK
     Dates: end: 20140215
  7. GLIFAGE [Concomitant]
     Indication: DIABETES MELLITUS
     Dosage: UNK UKN, UNK
     Dates: end: 20140215

REACTIONS (1)
  - Blood creatinine increased [Unknown]
